FAERS Safety Report 7645108-2 (Version None)
Quarter: 2011Q3

REPORT INFORMATION
  Report Type: 
  Country: None (occurrence: None)
  Receive Date: 20110725
  Receipt Date: 20110712
  Transmission Date: 20111222
  Serious: Yes (Death, Other)
  Sender: FDA-Public Use
  Company Number: 11-000603

PATIENT

DRUGS (3)
  1. CEPHALEXIN [Suspect]
     Indication: SINUSITIS
     Dosage: 500 MG, BID, TRANSPLACENTAL
     Route: 064
     Dates: start: 20110301, end: 20110301
  2. FLOVENT (FLUTICASONE PROPIONATE) INHALER [Concomitant]
  3. LOESTRIN 24 FE [Suspect]
     Indication: CONTRACEPTION
     Dosage: 20/1000 UG, QD, TRANSPLACENTAL
     Route: 064
     Dates: start: 20110426, end: 20110519

REACTIONS (2)
  - ABORTION SPONTANEOUS [None]
  - MATERNAL EXPOSURE DURING PREGNANCY [None]
